FAERS Safety Report 6891916-5 (Version None)
Quarter: 2010Q3

REPORT INFORMATION
  Report Type: 
  Country: None (occurrence: None)
  Receive Date: 20100731
  Receipt Date: 20071126
  Transmission Date: 20110219
  Serious: No
  Sender: FDA-Public Use
  Company Number: US-PFIZER INC-2007090061

PATIENT
  Sex: Female
  Weight: 72.6 kg

DRUGS (12)
  1. GABAPENTIN [Suspect]
     Indication: DIABETIC NEUROPATHY
     Dates: start: 20070101, end: 20070101
  2. GABAPENTIN [Suspect]
     Indication: POST HERPETIC NEURALGIA
  3. LYRICA [Suspect]
     Indication: DIABETIC NEUROPATHY
     Dates: start: 20070901, end: 20071012
  4. LYRICA [Suspect]
     Indication: POST HERPETIC NEURALGIA
  5. CENTRUM SILVER [Concomitant]
  6. LISINOPRIL [Concomitant]
  7. GLIPIZIDE [Concomitant]
  8. METFORMIN HCL [Concomitant]
  9. CITRACAL + D [Concomitant]
  10. ACETYLSALICYLIC ACID SRT [Concomitant]
  11. SIMVASTATIN [Concomitant]
  12. FISH OIL [Concomitant]

REACTIONS (3)
  - DRUG INEFFECTIVE [None]
  - HYPERAESTHESIA [None]
  - NEURALGIA [None]
